FAERS Safety Report 20540676 (Version 1)
Quarter: 2022Q1

REPORT INFORMATION
  Report Type: Spontaneous
  Country: JP (occurrence: JP)
  Receive Date: 20220302
  Receipt Date: 20220302
  Transmission Date: 20220424
  Serious: Yes (Death, Hospitalization, Other)
  Sender: FDA-Public Use
  Company Number: JP-MTPC-MTPC2021-0026023AA

PATIENT
  Age: 49 Year
  Sex: Female

DRUGS (4)
  1. REMICADE [Suspect]
     Active Substance: INFLIXIMAB
     Indication: Autoinflammatory disease
     Route: 042
  2. METHOTREXATE [Suspect]
     Active Substance: METHOTREXATE
     Indication: Autoinflammatory disease
     Route: 065
  3. ADALIMUMAB [Concomitant]
     Active Substance: ADALIMUMAB
     Indication: Autoinflammatory disease
     Route: 065
  4. BRODALUMAB [Concomitant]
     Active Substance: BRODALUMAB
     Indication: B-cell lymphoma
     Route: 065

REACTIONS (4)
  - Renal failure [Fatal]
  - Metabolic acidosis [Fatal]
  - Nephrotic syndrome [Not Recovered/Not Resolved]
  - Hyperkalaemia [Not Recovered/Not Resolved]
